FAERS Safety Report 24130551 (Version 2)
Quarter: 2024Q3

REPORT INFORMATION
  Report Type: Spontaneous
  Country: CA (occurrence: CA)
  Receive Date: 20240724
  Receipt Date: 20240829
  Transmission Date: 20241017
  Serious: Yes (Hospitalization)
  Sender: BAUSCH AND LOMB
  Company Number: CA-BAUSCH-BL-2024-011233

PATIENT
  Age: 38 Year
  Sex: Male

DRUGS (1)
  1. ACYCLOVIR [Suspect]
     Active Substance: ACYCLOVIR
     Indication: Product prescribing error
     Route: 042

REACTIONS (3)
  - Agitation [Recovering/Resolving]
  - Endotracheal intubation [Recovering/Resolving]
  - Wrong patient received product [Recovering/Resolving]
